FAERS Safety Report 12233869 (Version 1)
Quarter: 2016Q2

REPORT INFORMATION
  Report Type: Spontaneous
  Country: IT (occurrence: IT)
  Receive Date: 20160404
  Receipt Date: 20160404
  Transmission Date: 20160815
  Serious: Yes (Hospitalization)
  Sender: FDA-Public Use
  Company Number: IT-TEVA-647121ACC

PATIENT
  Age: 0 Day
  Sex: Male

DRUGS (2)
  1. XANAX [Suspect]
     Active Substance: ALPRAZOLAM
     Indication: DEPRESSION
     Dosage: 1 DOSAGE FORMS DAILY; 1 DF DAILY
     Route: 064
  2. PAROXETINE. [Suspect]
     Active Substance: PAROXETINE
     Indication: DEPRESSION
     Dosage: 5 MILLIGRAM DAILY; 5 MG DAILY
     Route: 064

REACTIONS (2)
  - Maternal drugs affecting foetus [None]
  - Small for dates baby [Recovered/Resolved]

NARRATIVE: CASE EVENT DATE: 20100425
